FAERS Safety Report 17085070 (Version 3)
Quarter: 2019Q4

REPORT INFORMATION
  Report Type: Spontaneous
  Country: US (occurrence: US)
  Receive Date: 20191127
  Receipt Date: 20191216
  Transmission Date: 20200122
  Serious: No
  Sender: FDA-Public Use
  Company Number: US-JNJFOC-20191125511

PATIENT
  Sex: Male
  Weight: 74.91 kg

DRUGS (1)
  1. MENS ROGAINE EXTRA STRENGTH [Suspect]
     Active Substance: MINOXIDIL
     Indication: ALOPECIA
     Dosage: DOSE: SLIGHTLY HALF CUP AND MORE AND FREQUENCY : TWICE A DAY ONLY.
     Route: 061
     Dates: start: 20190910

REACTIONS (3)
  - Overdose [Unknown]
  - Product residue present [Not Recovered/Not Resolved]
  - Seborrhoea [Not Recovered/Not Resolved]
